FAERS Safety Report 10576209 (Version 4)
Quarter: 2015Q4

REPORT INFORMATION
  Report Type: Spontaneous
  Country: US (occurrence: US)
  Receive Date: 20141111
  Receipt Date: 20151123
  Transmission Date: 20160304
  Serious: No
  Sender: FDA-Public Use
  Company Number: US-PFIZER INC-2014304788

PATIENT
  Age: 72 Year
  Sex: Female
  Weight: 71 kg

DRUGS (9)
  1. AMITRIPTYLINE HYDROCHLORIDE. [Suspect]
     Active Substance: AMITRIPTYLINE HYDROCHLORIDE
     Dosage: 10 MG, DAILY
  2. HYDROCODONE/ACETAMINOPHEN [Suspect]
     Active Substance: ACETAMINOPHEN\HYDROCODONE
     Indication: BONE DISORDER
     Dosage: (7.5 MG, 325MG), FOUR PER DAY
  3. TYLENOL [Suspect]
     Active Substance: ACETAMINOPHEN
     Indication: SENSORY LOSS
  4. LYRICA [Suspect]
     Active Substance: PREGABALIN
     Dosage: UNK
  5. CORTISONE ACETATE. [Suspect]
     Active Substance: CORTISONE ACETATE
     Indication: PERIPHERAL SWELLING
  6. CORTISONE ACETATE. [Suspect]
     Active Substance: CORTISONE ACETATE
     Indication: SENSORY LOSS
  7. CORTISONE ACETATE. [Suspect]
     Active Substance: CORTISONE ACETATE
     Indication: PAIN
     Dosage: UNK
  8. TYLENOL [Suspect]
     Active Substance: ACETAMINOPHEN
     Indication: PAIN
     Dosage: UNK
  9. TYLENOL [Suspect]
     Active Substance: ACETAMINOPHEN
     Indication: PERIPHERAL SWELLING

REACTIONS (1)
  - Drug ineffective [Unknown]
